FAERS Safety Report 19241670 (Version 1)
Quarter: 2021Q2

REPORT INFORMATION
  Report Type: Report from Study
  Country: None (occurrence: CA)
  Receive Date: 20210511
  Receipt Date: 20210511
  Transmission Date: 20210717
  Serious: Yes (Other)
  Sender: FDA-Public Use
  Company Number: CA-ABBVIE-21K-028-3897249-00

PATIENT
  Sex: Female

DRUGS (1)
  1. HUMIRA [Suspect]
     Active Substance: ADALIMUMAB
     Indication: CROHN^S DISEASE
     Route: 058
     Dates: start: 20151020

REACTIONS (5)
  - Post procedural constipation [Unknown]
  - Post procedural complication [Unknown]
  - Colectomy [Recovered/Resolved]
  - Intestinal stenosis [Unknown]
  - Procedural intestinal perforation [Unknown]

NARRATIVE: CASE EVENT DATE: 2020
